FAERS Safety Report 20690034 (Version 1)
Quarter: 2022Q2

REPORT INFORMATION
  Report Type: Spontaneous
  Country: US (occurrence: None)
  Receive Date: 20220407
  Receipt Date: 20220407
  Transmission Date: 20220720
  Serious: No
  Sender: FDA-Public Use
  Company Number: None

PATIENT
  Age: 25 Year
  Sex: Female
  Weight: 49.9 kg

DRUGS (2)
  1. LILETTA [Suspect]
     Active Substance: LEVONORGESTREL
     Indication: Product used for unknown indication
  2. VITAMINS [Concomitant]
     Active Substance: VITAMINS

REACTIONS (6)
  - Complication of device insertion [None]
  - Procedural pain [None]
  - Hyperhidrosis [None]
  - Loss of consciousness [None]
  - Abdominal pain [None]
  - Procedural pain [None]

NARRATIVE: CASE EVENT DATE: 20201210
